FAERS Safety Report 25908696 (Version 1)
Quarter: 2025Q4

REPORT INFORMATION
  Report Type: Spontaneous
  Country: US (occurrence: US)
  Receive Date: 20251010
  Receipt Date: 20251010
  Transmission Date: 20260118
  Serious: Yes (Hospitalization)
  Sender: IPCA
  Company Number: US-IPCA LABORATORIES LIMITED-IPC-2025-US-002709

PATIENT

DRUGS (2)
  1. LOSARTAN AND HYDROCHLOROTHIAZIDE [Interacting]
     Active Substance: HYDROCHLOROTHIAZIDE\LOSARTAN POTASSIUM
     Indication: Hypertension
     Dosage: 100/25 MILLIGRAM, QD
     Route: 065
  2. TIRZEPATIDE [Interacting]
     Active Substance: TIRZEPATIDE
     Indication: Product used for unknown indication
     Dosage: 2.5 MILLIGRAM
     Route: 058

REACTIONS (2)
  - Hypercalcaemia [Recovered/Resolved]
  - Drug interaction [Unknown]
